FAERS Safety Report 8173874-9 (Version None)
Quarter: 2012Q1

REPORT INFORMATION
  Report Type: 
  Country: None (occurrence: None)
  Receive Date: 20120224
  Receipt Date: 20120206
  Transmission Date: 20120608
  Serious: Yes (Death, Hospitalization)
  Sender: FDA-Public Use
  Company Number: 2012AP000389

PATIENT
  Age: 87 Year
  Sex: Female

DRUGS (8)
  1. REPAGLINIDE [Concomitant]
  2. NIFEDIPINE [Concomitant]
  3. CANDESARTAN CILEXETIL AND HYDROCHLOROTHIAZIDE [Suspect]
     Indication: HYPERTENSION
  4. METFORMIN HCL [Suspect]
     Indication: TYPE 2 DIABETES MELLITUS
     Dosage: 850 MG, Q8H
  5. TORASEMIDE (TORASEMIDE) [Concomitant]
  6. OMEPRAZOLE [Concomitant]
  7. DEFLAZACORT (DEFLAZACORT) [Concomitant]
  8. ACENOCOUMAROL (ACENOCOUMAROL) [Concomitant]

REACTIONS (13)
  - HYPOVOLAEMIA [None]
  - DISORIENTATION [None]
  - COAGULOPATHY [None]
  - DIARRHOEA [None]
  - HAEMOGLOBIN DECREASED [None]
  - RENAL IMPAIRMENT [None]
  - LACTIC ACIDOSIS [None]
  - BLOOD GLUCOSE INCREASED [None]
  - MUCOSAL DRYNESS [None]
  - LIVER DISORDER [None]
  - CARDIAC FAILURE CONGESTIVE [None]
  - VOMITING [None]
  - BLOOD POTASSIUM INCREASED [None]
